FAERS Safety Report 14554304 (Version 1)
Quarter: 2018Q1

REPORT INFORMATION
  Report Type: Spontaneous
  Country: US (occurrence: US)
  Receive Date: 20180220
  Receipt Date: 20180220
  Transmission Date: 20180509
  Serious: Yes (Life-Threatening, Hospitalization, Disabling)
  Sender: FDA-Public Use
  Company Number: None

PATIENT
  Age: 69 Year
  Sex: Male
  Weight: 81.65 kg

DRUGS (14)
  1. IBUPROFEN 800MG [Suspect]
     Active Substance: IBUPROFEN
     Indication: RHEUMATOID ARTHRITIS
     Route: 048
     Dates: start: 19950427, end: 20180108
  2. ACETAMINOPHEN. [Concomitant]
     Active Substance: ACETAMINOPHEN
  3. ALLOPURINOL. [Concomitant]
     Active Substance: ALLOPURINOL
  4. FLUOXETINE [Concomitant]
     Active Substance: FLUOXETINE HYDROCHLORIDE
  5. TAMSULOSIN [Concomitant]
     Active Substance: TAMSULOSIN
  6. METFORMIN [Concomitant]
     Active Substance: METFORMIN HYDROCHLORIDE
  7. IBUPROFEN 800MG [Suspect]
     Active Substance: IBUPROFEN
     Indication: CHEST PAIN
     Route: 048
     Dates: start: 19950427, end: 20180108
  8. IBUPROFEN 800MG [Suspect]
     Active Substance: IBUPROFEN
     Indication: BACK PAIN
     Route: 048
     Dates: start: 19950427, end: 20180108
  9. IBUPROFEN 800MG [Suspect]
     Active Substance: IBUPROFEN
     Indication: HEADACHE
     Route: 048
     Dates: start: 19950427, end: 20180108
  10. ATENOLOL. [Concomitant]
     Active Substance: ATENOLOL
  11. CETIRIZINE [Concomitant]
     Active Substance: CETIRIZINE HYDROCHLORIDE
  12. HCTZ/LISINOPRIL [Concomitant]
     Active Substance: HYDROCHLOROTHIAZIDE\LISINOPRIL
  13. ASPIRIN. [Concomitant]
     Active Substance: ASPIRIN
  14. OMEPRAZOLE. [Concomitant]
     Active Substance: OMEPRAZOLE

REACTIONS (5)
  - Erectile dysfunction [None]
  - Hypertension [None]
  - Depression [None]
  - Hepatic function abnormal [None]
  - Myocardial infarction [None]

NARRATIVE: CASE EVENT DATE: 20140101
